FAERS Safety Report 7678253-6 (Version None)
Quarter: 2011Q3

REPORT INFORMATION
  Report Type: 
  Country: None (occurrence: None)
  Receive Date: 20110811
  Receipt Date: 20110801
  Transmission Date: 20111222
  Serious: Yes (Hospitalization)
  Sender: FDA-Public Use
  Company Number: US-JNJFOC-20100510102

PATIENT
  Sex: Female

DRUGS (3)
  1. REMICADE [Suspect]
     Indication: COLITIS ULCERATIVE
     Dosage: 2ND DOSE
     Route: 042
     Dates: start: 20100430
  2. REMICADE [Suspect]
     Route: 042
     Dates: start: 20100520
  3. REMICADE [Suspect]
     Route: 042
     Dates: start: 20100417

REACTIONS (2)
  - VIRAL INFECTION [None]
  - COLITIS ULCERATIVE [None]
